FAERS Safety Report 19091477 (Version 1)
Quarter: 2021Q2

REPORT INFORMATION
  Report Type: Spontaneous
  Country: HU (occurrence: HU)
  Receive Date: 20210405
  Receipt Date: 20210405
  Transmission Date: 20210717
  Serious: Yes (Other)
  Sender: FDA-Public Use
  Company Number: NVSC2021HU071248

PATIENT
  Age: 55 Year
  Sex: Male

DRUGS (12)
  1. INTERFERON [Concomitant]
     Active Substance: INTERFERON
     Indication: PRODUCT USED FOR UNKNOWN INDICATION
     Dosage: UNK (3 MU DAILY)
     Route: 065
     Dates: start: 200902
  2. GLIVEC [Suspect]
     Active Substance: IMATINIB MESYLATE
     Indication: PRODUCT USED FOR UNKNOWN INDICATION
     Dosage: UNK
     Route: 065
     Dates: start: 200902
  3. CYTOSAR [Concomitant]
     Active Substance: CYTARABINE
     Dosage: 100 MG, QD
     Route: 048
     Dates: start: 200209, end: 2002
  4. CYTOSAR [Concomitant]
     Active Substance: CYTARABINE
     Dosage: 100 MG, QD
     Route: 048
     Dates: start: 2002, end: 2002
  5. CYTOSAR [Concomitant]
     Active Substance: CYTARABINE
     Dosage: UNK (INFUSION)
     Route: 048
     Dates: end: 2005
  6. CYTOSAR [Concomitant]
     Active Substance: CYTARABINE
     Dosage: UNK
     Route: 048
     Dates: end: 2006
  7. CYTOSAR [Concomitant]
     Active Substance: CYTARABINE
     Dosage: 100 MG
     Route: 058
  8. LITALIR [Concomitant]
     Active Substance: HYDROXYUREA
     Dosage: 6 DF, QD
     Route: 065
     Dates: start: 200209
  9. DALACIN [Concomitant]
     Active Substance: CLINDAMYCIN
     Indication: PRODUCT USED FOR UNKNOWN INDICATION
     Dosage: UNK
     Route: 065
     Dates: start: 2002
  10. LITALIR [Concomitant]
     Active Substance: HYDROXYUREA
     Indication: PRODUCT USED FOR UNKNOWN INDICATION
     Dosage: 4 DF
     Route: 065
     Dates: start: 2002, end: 2002
  11. CYTOSAR [Concomitant]
     Active Substance: CYTARABINE
     Indication: PRODUCT USED FOR UNKNOWN INDICATION
     Dosage: 600 MG
     Route: 048
     Dates: start: 20010625, end: 20020404
  12. LITALIR [Concomitant]
     Active Substance: HYDROXYUREA
     Dosage: 3 DF
     Route: 065
     Dates: start: 20020610

REACTIONS (3)
  - Off label use [Unknown]
  - Gene mutation identification test positive [Recovered/Resolved]
  - Philadelphia chromosome positive [Recovered/Resolved]

NARRATIVE: CASE EVENT DATE: 200904
